FAERS Safety Report 5890886-6 (Version None)
Quarter: 2008Q3

REPORT INFORMATION
  Report Type: 
  Country: None (occurrence: None)
  Receive Date: 20080918
  Receipt Date: 20080918
  Transmission Date: 20090109
  Serious: Yes (Life-Threatening, Hospitalization)
  Sender: FDA-Public Use
  Company Number: None

PATIENT
  Age: 52 Year
  Sex: Female

DRUGS (1)
  1. VISICOL [Suspect]
     Indication: COLONOSCOPY
     Dosage: 28 4 EVERY 15 MINUTES PO
     Route: 048
     Dates: start: 20070923, end: 20070923

REACTIONS (6)
  - ASTHENIA [None]
  - BLOOD ELECTROLYTES DECREASED [None]
  - CHEST PAIN [None]
  - HEART RATE DECREASED [None]
  - LOSS OF CONSCIOUSNESS [None]
  - MALAISE [None]
